FAERS Safety Report 8036216-5 (Version None)
Quarter: 2012Q1

REPORT INFORMATION
  Report Type: 
  Country: None (occurrence: None)
  Receive Date: 20120111
  Receipt Date: 20120105
  Transmission Date: 20120608
  Serious: Yes (Hospitalization, Other)
  Sender: FDA-Public Use
  Company Number: PHHY2012BR001222

PATIENT
  Age: 69 Year
  Sex: Male

DRUGS (2)
  1. ONCO-BCG [Concomitant]
  2. RASILEZ [Suspect]
     Indication: HYPERTENSION
     Dosage: 300 MG, QD

REACTIONS (6)
  - DIARRHOEA [None]
  - CHOLELITHIASIS [None]
  - BLADDER NEOPLASM [None]
  - DIABETES MELLITUS [None]
  - VOMITING [None]
  - WEIGHT DECREASED [None]
